FAERS Safety Report 9258559 (Version 1)
Quarter: 2013Q1

REPORT INFORMATION
  Report Type: Spontaneous
  Country: US (occurrence: None)
  Receive Date: 20121212
  Receipt Date: 20121212
  Transmission Date: 20140127
  Serious: No
  Sender: FDA-Public Use
  Company Number: 1210USA012379

PATIENT
  Age: 54 Year
  Sex: Female

DRUGS (4)
  1. VICTRELIS (BOCEPREVIR) [Suspect]
     Route: 048
     Dates: start: 2012
  2. RIBAVIRIN (RIBAVIRIN) [Suspect]
  3. PEGASYS (PEGINTERFERON ALFA-2A) [Suspect]
  4. CELEXA [Concomitant]

REACTIONS (2)
  - Productive cough [None]
  - Pyrexia [None]
